FAERS Safety Report 6252810-6 (Version None)
Quarter: 2009Q3

REPORT INFORMATION
  Report Type: 
  Country: None (occurrence: None)
  Receive Date: 20090701
  Receipt Date: 20090622
  Transmission Date: 20100115
  Serious: Yes (Hospitalization, Other)
  Sender: FDA-Public Use
  Company Number: US-ABBOTT-09P-163-0581094-00

PATIENT
  Sex: Female
  Weight: 90.8 kg

DRUGS (14)
  1. HUMIRA [Suspect]
     Indication: RHEUMATOID ARTHRITIS
     Route: 058
     Dates: start: 20070518, end: 20080801
  2. HUMIRA [Suspect]
     Route: 058
     Dates: start: 20090622
  3. ALEVE (CAPLET) [Suspect]
     Indication: ULCER HAEMORRHAGE
     Dates: start: 20080101, end: 20090501
  4. HYZAAR [Concomitant]
     Indication: HYPERTENSION
  5. AMLODIPINE [Concomitant]
     Indication: HYPERTENSION
  6. SYNTHROID [Concomitant]
     Indication: HYPOTHYROIDISM
  7. METHOTREXATE [Concomitant]
     Indication: RHEUMATOID ARTHRITIS
  8. PREDNISONE TAB [Concomitant]
     Indication: RHEUMATOID ARTHRITIS
  9. ARAVA [Concomitant]
     Indication: RHEUMATOID ARTHRITIS
  10. HYDROCODONE BITARTRATE [Concomitant]
     Indication: INSOMNIA
  11. AMITRIPTYLINE [Concomitant]
     Indication: INSOMNIA
  12. FOLIC ACID [Concomitant]
     Indication: RHEUMATOID ARTHRITIS
  13. COLACE [Concomitant]
     Indication: CONSTIPATION
  14. FISH OIL [Concomitant]
     Indication: ROUTINE HEALTH MAINTENANCE

REACTIONS (5)
  - ARTHRITIS [None]
  - ARTHROPATHY [None]
  - GASTRIC ULCER HAEMORRHAGE [None]
  - LICHEN PLANUS [None]
  - PAIN [None]
